FAERS Safety Report 18262771 (Version 1)
Quarter: 2020Q3

REPORT INFORMATION
  Report Type: Spontaneous
  Country: US (occurrence: US)
  Receive Date: 20200914
  Receipt Date: 20200914
  Transmission Date: 20201103
  Serious: No
  Sender: FDA-Public Use
  Company Number: US-JNJFOC-20200902199

PATIENT
  Age: 11 Year
  Sex: Female

DRUGS (1)
  1. CONCERTA [Suspect]
     Active Substance: METHYLPHENIDATE HYDROCHLORIDE
     Indication: PRODUCT USED FOR UNKNOWN INDICATION
     Route: 048

REACTIONS (11)
  - Eye pruritus [Unknown]
  - Insomnia [Unknown]
  - Adverse drug reaction [Unknown]
  - Mood altered [Unknown]
  - Negative thoughts [Unknown]
  - Urticaria [Unknown]
  - Rash [Unknown]
  - Swelling [Unknown]
  - Acne [Unknown]
  - Dermatitis [Unknown]
  - Rash macular [Unknown]
